FAERS Safety Report 5337733-9 (Version None)
Quarter: 2007Q1

REPORT INFORMATION
  Report Type: 
  Country: None (occurrence: None)
  Receive Date: 20070308
  Receipt Date: 20061211
  Transmission Date: 20070707
  Serious: No
  Sender: FDA-Public Use
  Company Number: 2006-BP-14394BP

PATIENT
  Age: 86 Year
  Sex: Female

DRUGS (1)
  1. SPIRIVA [Suspect]
     Indication: PULMONARY HYPERTENSION
     Dosage: 18 MCG (18 MCG, 1 IN 1 D), IH
     Route: 055
     Dates: start: 20060702, end: 20061109

REACTIONS (1)
  - URINE FLOW DECREASED [None]
